FAERS Safety Report 20050006 (Version 4)
Quarter: 2022Q1

REPORT INFORMATION
  Report Type: Spontaneous
  Country: PT (occurrence: PT)
  Receive Date: 20211109
  Receipt Date: 20220118
  Transmission Date: 20220423
  Serious: Yes (Life-Threatening, Hospitalization, Other)
  Sender: FDA-Public Use
  Company Number: PT-MYLANLABS-2021M1079872

PATIENT
  Age: 66 Year
  Sex: Female

DRUGS (9)
  1. CLOPIDOGREL [Suspect]
     Active Substance: CLOPIDOGREL BISULFATE
     Indication: Anticoagulant therapy
     Dosage: UNK
     Route: 065
  2. CLOPIDOGREL [Suspect]
     Active Substance: CLOPIDOGREL BISULFATE
     Indication: Intracardiac thrombus
  3. CLOPIDOGREL [Suspect]
     Active Substance: CLOPIDOGREL BISULFATE
     Indication: Antiplatelet therapy
  4. CLOPIDOGREL [Suspect]
     Active Substance: CLOPIDOGREL BISULFATE
     Indication: Congestive cardiomyopathy
  5. APIXABAN [Suspect]
     Active Substance: APIXABAN
     Indication: Intracardiac thrombus
     Dosage: UNK
     Route: 065
  6. APIXABAN [Suspect]
     Active Substance: APIXABAN
     Indication: Anticoagulant therapy
  7. APIXABAN [Suspect]
     Active Substance: APIXABAN
     Indication: Cerebrovascular accident prophylaxis
  8. APIXABAN [Suspect]
     Active Substance: APIXABAN
     Indication: Hypocoagulable state
  9. APIXABAN [Suspect]
     Active Substance: APIXABAN
     Indication: Congestive cardiomyopathy

REACTIONS (4)
  - Cerebrovascular accident [Recovered/Resolved]
  - Drug resistance [Unknown]
  - Embolic stroke [Recovered/Resolved]
  - Drug ineffective [Unknown]
